FAERS Safety Report 6590026-4 (Version None)
Quarter: 2010Q1

REPORT INFORMATION
  Report Type: 
  Country: None (occurrence: None)
  Receive Date: 20100219
  Receipt Date: 20100209
  Transmission Date: 20100710
  Serious: Yes (Other)
  Sender: FDA-Public Use
  Company Number: PHHY2009CA35869

PATIENT
  Sex: Female

DRUGS (10)
  1. SANDOSTATIN LAR [Suspect]
     Indication: ACROMEGALY
     Dosage: 20 MG EDVERY 4 WEEKS
     Route: 030
     Dates: start: 20090303
  2. ELTROXIN ^GLAXO^ [Concomitant]
  3. ALERTEC [Concomitant]
  4. EFFEXOR [Concomitant]
  5. SYMBICORT [Concomitant]
  6. NEXIUM [Concomitant]
  7. CLONAZEPAM [Concomitant]
  8. REACTINE                                /CAN/ [Concomitant]
  9. BACLOFEN [Concomitant]
  10. LORAZEPAM [Concomitant]

REACTIONS (12)
  - ANGER [None]
  - CONFUSIONAL STATE [None]
  - DIARRHOEA [None]
  - EYELID DISORDER [None]
  - FATIGUE [None]
  - FLUSHING [None]
  - HEADACHE [None]
  - MALAISE [None]
  - NASAL CONGESTION [None]
  - NAUSEA [None]
  - SPEECH DISORDER [None]
  - STRESS [None]
